FAERS Safety Report 25242693 (Version 5)
Quarter: 2025Q4

REPORT INFORMATION
  Report Type: Report from Study
  Country: CA (occurrence: CA)
  Receive Date: 20250427
  Receipt Date: 20251023
  Transmission Date: 20260117
  Serious: Yes (Hospitalization, Other)
  Sender: ALEXION PHARMACEUTICALS
  Company Number: CA-AstraZeneca-CH-00854027A

PATIENT
  Age: 40 Year
  Sex: Female
  Weight: 46 kg

DRUGS (7)
  1. ANIFROLUMAB [Suspect]
     Active Substance: ANIFROLUMAB
     Indication: Autoantibody positive
     Dosage: 300 MILLIGRAM, Q4W
     Dates: start: 20250401
  2. ANIFROLUMAB [Suspect]
     Active Substance: ANIFROLUMAB
     Indication: Systemic lupus erythematosus
  3. PREDNISONE [Concomitant]
     Active Substance: PREDNISONE
     Dosage: 30 MILLIGRAM
     Route: 065
  4. PREDNISONE [Concomitant]
     Active Substance: PREDNISONE
     Dosage: 20 MILLIGRAM, QD
     Route: 065
     Dates: start: 20241219
  5. HYDROXYCHLOROQUINE [Concomitant]
     Active Substance: HYDROXYCHLOROQUINE
     Dosage: 400 MILLIGRAM, QD
     Route: 065
     Dates: start: 2021
  6. METHOTREXATE [Concomitant]
     Active Substance: METHOTREXATE
     Route: 065
  7. METHOTREXATE [Concomitant]
     Active Substance: METHOTREXATE
     Route: 065

REACTIONS (13)
  - Pneumonia [Recovered/Resolved]
  - Endocarditis [Recovered/Resolved]
  - Toxicity to various agents [Unknown]
  - Pyrexia [Unknown]
  - Loss of consciousness [Unknown]
  - Septic shock [Unknown]
  - Macular degeneration [Unknown]
  - Pleuritic pain [Recovered/Resolved]
  - Pain in extremity [Unknown]
  - Sepsis [Unknown]
  - Septic cerebral embolism [Unknown]
  - Proteinuria [Unknown]
  - Lupus nephritis [Unknown]

NARRATIVE: CASE EVENT DATE: 20250403
